FAERS Safety Report 8287294-X (Version None)
Quarter: 2012Q2

REPORT INFORMATION
  Report Type: 
  Country: None (occurrence: None)
  Receive Date: 20120416
  Receipt Date: 20120416
  Transmission Date: 20120825
  Serious: Yes (Life-Threatening, Disabling, Other)
  Sender: FDA-Public Use
  Company Number: None

PATIENT
  Age: 29 Year
  Sex: Female
  Weight: 56.699 kg

DRUGS (1)
  1. DYSPORT [Suspect]

REACTIONS (9)
  - FEELING ABNORMAL [None]
  - THINKING ABNORMAL [None]
  - LETHARGY [None]
  - EYELID PTOSIS [None]
  - BLOOD CREATINE PHOSPHOKINASE INCREASED [None]
  - APHONIA [None]
  - THIRST [None]
  - ASTHMA [None]
  - APHASIA [None]
